FAERS Safety Report 6974385-6 (Version None)
Quarter: 2010Q3

REPORT INFORMATION
  Report Type: 
  Country: None (occurrence: None)
  Receive Date: 20100909
  Receipt Date: 20080620
  Transmission Date: 20110219
  Serious: No
  Sender: FDA-Public Use
  Company Number: US-WYE-H04700708

PATIENT
  Age: 23 Year
  Sex: Female

DRUGS (4)
  1. PROTONIX [Suspect]
     Indication: GASTROOESOPHAGEAL REFLUX DISEASE
     Route: 048
     Dates: start: 20080501
  2. HYDROCODONE [Concomitant]
  3. MULTI-VITAMINS [Concomitant]
  4. TOPAMAX [Concomitant]

REACTIONS (1)
  - DRUG SCREEN POSITIVE [None]
